FAERS Safety Report 24022200 (Version 2)
Quarter: 2024Q2

REPORT INFORMATION
  Report Type: Spontaneous
  Country: SK (occurrence: SK)
  Receive Date: 20240627
  Receipt Date: 20240627
  Transmission Date: 20240715
  Serious: No
  Sender: FDA-Public Use
  Company Number: SK-ROCHE-3511668

PATIENT
  Age: 79 Year
  Sex: Female

DRUGS (1)
  1. FARICIMAB [Suspect]
     Active Substance: FARICIMAB
     Indication: Choroidal neovascularisation
     Route: 050

REACTIONS (1)
  - Choroidal neovascularisation [Unknown]
